FAERS Safety Report 10159870 (Version 1)
Quarter: 2014Q2

REPORT INFORMATION
  Report Type: Spontaneous
  Country: US (occurrence: US)
  Receive Date: 20140508
  Receipt Date: 20140508
  Transmission Date: 20141212
  Serious: No
  Sender: FDA-Public Use
  Company Number: US-GLAXOSMITHKLINE-A1037927A

PATIENT
  Sex: Female

DRUGS (2)
  1. TYKERB [Suspect]
     Indication: PRODUCT USED FOR UNKNOWN INDICATION
     Dosage: 1250MG PER DAY
     Route: 065
     Dates: start: 20130812
  2. UNSPECIFIED MEDICATION [Suspect]
     Indication: PRODUCT USED FOR UNKNOWN INDICATION
     Route: 065

REACTIONS (7)
  - Dyspepsia [Unknown]
  - Fatigue [Unknown]
  - Therapeutic response changed [Unknown]
  - Nausea [Unknown]
  - Glossodynia [Unknown]
  - Malaise [Unknown]
  - Skin ulcer [Unknown]
